FAERS Safety Report 8603955 (Version 3)
Quarter: 2012Q4

REPORT INFORMATION
  Report Type: 
  Country: DE (occurrence: DE)
  Receive Date: 20120608
  Receipt Date: 20120828
  Transmission Date: 20130627
  Serious: Yes (Death, Hospitalization)
  Sender: FDA-Public Use
  Company Number: DE-AMGEN-DEUSP2012035204

PATIENT
  Sex: Female
  Weight: 75 kg

DRUGS (9)
  1. VECTIBIX [Suspect]
     Indication: COLORECTAL CANCER METASTATIC
     Dosage: 400 mg, q2wk
     Route: 042
     Dates: start: 20110919, end: 20120402
  2. FLUOROURACIL [Suspect]
     Indication: COLORECTAL CANCER
     Dosage: 400 mg/m2, q2wk
     Route: 042
     Dates: start: 20120305, end: 20120402
  3. LEUCOVORIN [Suspect]
     Indication: COLORECTAL CANCER
     Dosage: 2400 mg/m2, q2wk
     Route: 042
     Dates: start: 20120305, end: 20120402
  4. IRINOTECAN [Concomitant]
     Indication: COLORECTAL CANCER METASTATIC
  5. XELODA [Concomitant]
     Indication: COLORECTAL CANCER
     Dosage: 450 mg, UNK
     Route: 042
     Dates: start: 201201
  6. PANTOZOL [Concomitant]
     Indication: GASTRITIS
     Dosage: 20 mg, qd
     Route: 048
     Dates: start: 2010, end: 20120508
  7. METOPROLOL [Concomitant]
     Indication: HYPERTENSION
     Dosage: 100 mg, qd
     Route: 048
     Dates: start: 2010, end: 20120508
  8. CARMEN                             /00740901/ [Concomitant]
     Indication: HYPERTENSION
     Dosage: 20 mg, qd
     Route: 048
     Dates: start: 2010, end: 20120508
  9. NOVALGIN                           /00169801/ [Concomitant]
     Indication: PAIN
     Dosage: 30 Gtt, prn
     Route: 048
     Dates: start: 2010, end: 20120508

REACTIONS (5)
  - Infection [Fatal]
  - Leukocytosis [Fatal]
  - Petechiae [Fatal]
  - Leukopenia [Fatal]
  - Diarrhoea [Fatal]
